FAERS Safety Report 13908841 (Version 1)
Quarter: 2017Q3

REPORT INFORMATION
  Report Type: Spontaneous
  Country: BE (occurrence: BE)
  Receive Date: 20170827
  Receipt Date: 20170827
  Transmission Date: 20171127
  Serious: Yes (Hospitalization)
  Sender: FDA-Public Use
  Company Number: BE-BAXTER-2017BAX030623

PATIENT
  Age: 24 Year
  Sex: Female
  Weight: 37 kg

DRUGS (14)
  1. PLAQUENIL [Concomitant]
     Active Substance: HYDROXYCHLOROQUINE SULFATE
     Indication: SYSTEMIC LUPUS ERYTHEMATOSUS
     Route: 048
  2. ENDOXAN 500 MG - POUDRE POUR SOLUTION INJECTABLE [Suspect]
     Active Substance: CYCLOPHOSPHAMIDE
     Dosage: SECOND CYCLE OF INFUSION
     Route: 042
     Dates: start: 20170727, end: 20170727
  3. UROMITEXAN 400MG/4ML, SOLUTION INJECTABLE [Suspect]
     Active Substance: MESNA
     Dosage: 4 HOURS AFTER AND 8 HOURS AFTER ENDOXAN
     Route: 042
     Dates: start: 20170727, end: 20170727
  4. ASAFLOW [Concomitant]
     Active Substance: ASPIRIN
     Indication: PRODUCT USED FOR UNKNOWN INDICATION
     Route: 048
  5. MEDROL [Concomitant]
     Active Substance: METHYLPREDNISOLONE
     Indication: PRODUCT USED FOR UNKNOWN INDICATION
     Route: 048
  6. ZOFRAN [Suspect]
     Active Substance: ONDANSETRON HYDROCHLORIDE
     Indication: PROPHYLAXIS OF NAUSEA AND VOMITING
     Dosage: 2 HOURS BEFORE ENDOXAN
     Route: 048
     Dates: start: 20170727, end: 20170727
  7. CRESTOR [Concomitant]
     Active Substance: ROSUVASTATIN CALCIUM
     Indication: PRODUCT USED FOR UNKNOWN INDICATION
     Route: 048
  8. D-VITAL FORTE [Concomitant]
     Indication: PRODUCT USED FOR UNKNOWN INDICATION
     Route: 048
  9. UROMITEXAN 400MG/4ML, SOLUTION INJECTABLE [Suspect]
     Active Substance: MESNA
     Indication: PROPHYLAXIS
     Dosage: 15 MINUTES BEFORE ENDOXAN
     Route: 042
     Dates: start: 20170727, end: 20170727
  10. FOLAVIT [Suspect]
     Active Substance: FOLIC ACID
     Indication: PRODUCT USED FOR UNKNOWN INDICATION
     Route: 048
  11. BICARBONATE SODIUM [Suspect]
     Active Substance: SODIUM BICARBONATE
     Indication: PRODUCT USED FOR UNKNOWN INDICATION
     Dosage: IN THE HOUR THAT PRECEDES ENDOXAN^S ADMINISTRATION
     Route: 042
     Dates: start: 20170727, end: 20170727
  12. PANTOMED (PANTOPRAZOLE SODIUM) [Concomitant]
     Active Substance: PANTOPRAZOLE SODIUM
     Indication: PRODUCT USED FOR UNKNOWN INDICATION
     Route: 048
  13. ENDOXAN 500 MG - POUDRE POUR SOLUTION INJECTABLE [Suspect]
     Active Substance: CYCLOPHOSPHAMIDE
     Indication: SYSTEMIC LUPUS ERYTHEMATOSUS
     Dosage: DOSAGE FORM: INFUSION, FIRST COURSE
     Route: 042
  14. ZOFRAN [Suspect]
     Active Substance: ONDANSETRON HYDROCHLORIDE
     Dosage: TWELVE HOURS AFTER ENDOXAN
     Route: 048
     Dates: start: 20170727, end: 20170727

REACTIONS (4)
  - Nausea [Unknown]
  - Pain in extremity [Not Recovered/Not Resolved]
  - Back pain [Not Recovered/Not Resolved]
  - Hyperthermia [Not Recovered/Not Resolved]

NARRATIVE: CASE EVENT DATE: 20170728
